FAERS Safety Report 17697154 (Version 2)
Quarter: 2020Q2

REPORT INFORMATION
  Report Type: Spontaneous
  Country: US (occurrence: US)
  Receive Date: 20200423
  Receipt Date: 20200601
  Transmission Date: 20200714
  Serious: No
  Sender: FDA-Public Use
  Company Number: US-ASTRAZENECA-2020SE51989

PATIENT
  Age: 985 Month
  Sex: Female
  Weight: 168 kg

DRUGS (4)
  1. BEVESPI AEROSPHERE [Suspect]
     Active Substance: FORMOTEROL FUMARATE\GLYCOPYRROLATE
     Indication: DYSPNOEA
     Dosage: UNKNOWN
     Route: 055
     Dates: start: 2019, end: 2019
  2. BEVESPI AEROSPHERE [Suspect]
     Active Substance: FORMOTEROL FUMARATE\GLYCOPYRROLATE
     Indication: DYSPNOEA
     Dosage: UNKNOWN
     Route: 055
     Dates: start: 2019, end: 2019
  3. BEVESPI AEROSPHERE [Suspect]
     Active Substance: FORMOTEROL FUMARATE\GLYCOPYRROLATE
     Indication: DYSPNOEA
     Dosage: 2 PUFFS BY MOUTH 2 TIMES DAILY
     Route: 055
     Dates: start: 20191204, end: 20191204
  4. BEVESPI AEROSPHERE [Suspect]
     Active Substance: FORMOTEROL FUMARATE\GLYCOPYRROLATE
     Indication: DYSPNOEA
     Dosage: 2 PUFFS BY MOUTH 2 TIMES DAILY
     Route: 055
     Dates: start: 20191204, end: 20191204

REACTIONS (2)
  - Dyspnoea exertional [Unknown]
  - Injury [Unknown]

NARRATIVE: CASE EVENT DATE: 202004
